FAERS Safety Report 8825464 (Version 8)
Quarter: 2014Q1

REPORT INFORMATION
  Report Type: Spontaneous
  Country: US (occurrence: US)
  Receive Date: 20121004
  Receipt Date: 20140212
  Transmission Date: 20141002
  Serious: Yes (Hospitalization, Disabling, Other)
  Sender: FDA-Public Use
  Company Number: US-009507513-1205USA00976

PATIENT
  Sex: Female
  Weight: 65.53 kg

DRUGS (4)
  1. FOSAMAX [Suspect]
     Indication: OSTEOPOROSIS
     Dosage: 10 MG, QD
     Route: 048
     Dates: start: 19960509, end: 2010
  2. FOSAMAX [Suspect]
     Indication: PROPHYLAXIS
  3. FOSAMAX PLUS D [Suspect]
     Route: 048
     Dates: start: 1996, end: 201001
  4. FOSAMAX [Suspect]
     Indication: OSTEOPENIA
     Route: 048
     Dates: start: 1996, end: 201001

REACTIONS (20)
  - Femur fracture [Not Recovered/Not Resolved]
  - Intramedullary rod insertion [Not Recovered/Not Resolved]
  - Femur fracture [Not Recovered/Not Resolved]
  - Intramedullary rod insertion [Unknown]
  - Low turnover osteopathy [Not Recovered/Not Resolved]
  - Femur fracture [Unknown]
  - Cataract [Unknown]
  - Nephrolithiasis [Recovered/Resolved]
  - Body height decreased [Not Recovered/Not Resolved]
  - Transient ischaemic attack [Recovered/Resolved]
  - Tooth disorder [Unknown]
  - Rib fracture [Unknown]
  - Fracture nonunion [Not Recovered/Not Resolved]
  - Bone erosion [Unknown]
  - Heart valve incompetence [Unknown]
  - Appendicitis [Unknown]
  - Cough [Unknown]
  - Spinal disorder [Unknown]
  - Dyspepsia [Recovered/Resolved]
  - Headache [Unknown]
